FAERS Safety Report 12975750 (Version 2)
Quarter: 2016Q4

REPORT INFORMATION
  Report Type: Report from Study
  Country: US (occurrence: US)
  Receive Date: 20161125
  Receipt Date: 20161205
  Transmission Date: 20170207
  Serious: Yes (Other)
  Sender: FDA-Public Use
  Company Number: US-AMGEN-USASL2016164220

PATIENT
  Age: 54 Year
  Sex: Female
  Weight: 78.5 kg

DRUGS (8)
  1. VITAMIN D [Concomitant]
     Active Substance: CHOLECALCIFEROL
     Dosage: 1 DF, EVERY MONDAY
  2. CALCIUM [Concomitant]
     Active Substance: CALCIUM
     Dosage: UNK UNK, QD
  3. BELVIQ [Concomitant]
     Active Substance: LORCASERIN HYDROCHLORIDE
     Dosage: UNK UNK, BID
     Dates: start: 201608, end: 201610
  4. VENLAFAXINE [Concomitant]
     Active Substance: VENLAFAXINE HYDROCHLORIDE
     Dosage: 75 MG, QD
  5. VENLAFAXINE [Concomitant]
     Active Substance: VENLAFAXINE HYDROCHLORIDE
     Indication: DEPRESSION
     Dosage: 150 MG, QD
  6. VENLAFAXINE [Concomitant]
     Active Substance: VENLAFAXINE HYDROCHLORIDE
     Dosage: 300 MG, UNK
  7. VITAMIN D [Concomitant]
     Active Substance: CHOLECALCIFEROL
     Dosage: UNK UNK, QD
  8. PROLIA [Suspect]
     Active Substance: DENOSUMAB
     Indication: OSTEOPOROSIS POSTMENOPAUSAL
     Dosage: 60 MG, Q6MO
     Route: 058
     Dates: start: 201512

REACTIONS (17)
  - Stress fracture [Not Recovered/Not Resolved]
  - Urticaria [Not Recovered/Not Resolved]
  - Gait disturbance [Not Recovered/Not Resolved]
  - Impaired healing [Not Recovered/Not Resolved]
  - General physical health deterioration [Unknown]
  - Swelling [Unknown]
  - Rash generalised [Unknown]
  - Infection [Unknown]
  - Anxiety [Unknown]
  - Somnolence [Unknown]
  - Staphylococcal infection [Not Recovered/Not Resolved]
  - Weight increased [Unknown]
  - Vitamin D decreased [Unknown]
  - Skin ulcer [Unknown]
  - Lower limb fracture [Not Recovered/Not Resolved]
  - Scab [Unknown]
  - Depression [Unknown]

NARRATIVE: CASE EVENT DATE: 2016
